FAERS Safety Report 6984425-6 (Version None)
Quarter: 2010Q3

REPORT INFORMATION
  Report Type: 
  Country: None (occurrence: None)
  Receive Date: 20100915
  Receipt Date: 20100902
  Transmission Date: 20110219
  Serious: Yes (Hospitalization, Other)
  Sender: FDA-Public Use
  Company Number: GB-ELI_LILLY_AND_COMPANY-GB201009000832

PATIENT
  Sex: Male

DRUGS (10)
  1. DROTRECOGIN ALFA (ACTIVATED) [Suspect]
     Indication: SEPSIS
     Dosage: 24MCG/KG, EVERY HOUR
     Route: 042
     Dates: start: 20100901
  2. CLARITROMYCINE [Concomitant]
  3. LEVOFLOXACIN [Concomitant]
  4. HYDROCORTISONE [Concomitant]
  5. RANITIDINE [Concomitant]
  6. ACETAMINOPHEN [Concomitant]
  7. METRONIDAZOLE [Concomitant]
  8. ALBUTEROL SULFATE AUTOHALER [Concomitant]
  9. METOCLOPRAMIDE [Concomitant]
  10. LEVOTHYROXINE [Concomitant]

REACTIONS (3)
  - HAEMATOMA [None]
  - INTERNATIONAL NORMALISED RATIO INCREASED [None]
  - PLATELET COUNT DECREASED [None]
